FAERS Safety Report 23015683 (Version 1)
Quarter: 2023Q4

REPORT INFORMATION
  Report Type: Report from Study
  Country: CO (occurrence: None)
  Receive Date: 20231002
  Receipt Date: 20231002
  Transmission Date: 20240110
  Serious: Yes (Death)
  Sender: FDA-Public Use
  Company Number: 2023A221600

PATIENT
  Age: 26094 Day
  Sex: Female

DRUGS (1)
  1. LYNPARZA [Suspect]
     Active Substance: OLAPARIB
     Indication: Ovarian cancer
     Route: 048
     Dates: start: 20220801, end: 20230727

REACTIONS (2)
  - Renal failure [Fatal]
  - Blood creatinine increased [Fatal]

NARRATIVE: CASE EVENT DATE: 20230727
